FAERS Safety Report 25938379 (Version 1)
Quarter: 2025Q4

REPORT INFORMATION
  Report Type: Report from Study
  Country: US (occurrence: US)
  Receive Date: 20251019
  Receipt Date: 20251019
  Transmission Date: 20260117
  Serious: Yes (Other)
  Sender: CSL BEHRING
  Company Number: US-BEH-2025222309

PATIENT
  Age: 87 Year
  Sex: Male

DRUGS (1)
  1. VELTASSA [Suspect]
     Active Substance: PATIROMER
     Indication: Hyperkalaemia
     Dosage: 8.4 G, QD
     Route: 048

REACTIONS (4)
  - Renal failure [Unknown]
  - Malaise [Unknown]
  - Asthenia [Unknown]
  - Blood iron decreased [Unknown]
